FAERS Safety Report 4570214-9 (Version None)
Quarter: 2005Q1

REPORT INFORMATION
  Report Type: 
  Country: None (occurrence: None)
  Receive Date: 20050202
  Receipt Date: 20050120
  Transmission Date: 20050727
  Serious: Yes (Disabling)
  Sender: FDA-Public Use
  Company Number: 2005001085

PATIENT
  Age: 43 Year
  Sex: Female
  Weight: 68 kg

DRUGS (3)
  1. DOXYCYCLINE [Suspect]
     Indication: LYME DISEASE
     Dosage: 200 MG (100 MG, 2 IN 1 D), ORAL
     Route: 048
     Dates: start: 20041009, end: 20041030
  2. ALL OTHER THERAPEUTIC PRODUCTS (ALL OTHER THERAPEUTIC PRODUCTS) [Concomitant]
  3. PARACETAMOL (PARACETAMOL) [Concomitant]

REACTIONS (7)
  - CHROMATURIA [None]
  - DYSPEPSIA [None]
  - FATIGUE [None]
  - GASTRIC DISORDER [None]
  - HEADACHE [None]
  - MALAISE [None]
  - PHOTOSENSITIVITY REACTION [None]
